FAERS Safety Report 5416279-3 (Version None)
Quarter: 2007Q3

REPORT INFORMATION
  Report Type: 
  Country: None (occurrence: None)
  Receive Date: 20070718
  Receipt Date: 20070221
  Transmission Date: 20080115
  Serious: Yes (Death, Other)
  Sender: FDA-Public Use
  Company Number: 2007014504

PATIENT
  Age: 56 Year
  Sex: Male

DRUGS (1)
  1. CELEBREX [Suspect]
     Indication: ARTHRALGIA
     Dosage: 200 MG (100 MG,2 IN 1 D)
     Dates: start: 20030327, end: 20030726

REACTIONS (2)
  - ARTHRALGIA [None]
  - MYOCARDIAL INFARCTION [None]
